FAERS Safety Report 13063532 (Version 6)
Quarter: 2018Q1

REPORT INFORMATION
  Report Type: Report from Study
  Country: None (occurrence: US)
  Receive Date: 20161227
  Receipt Date: 20180219
  Transmission Date: 20180508
  Serious: Yes (Other)
  Sender: FDA-Public Use
  Company Number: US-ABBVIE-16K-163-1817222-00

PATIENT
  Sex: Female

DRUGS (2)
  1. HUMIRA [Suspect]
     Active Substance: ADALIMUMAB
     Indication: RHEUMATOID ARTHRITIS
     Route: 058
     Dates: start: 2007
  2. ACTONEL [Suspect]
     Active Substance: RISEDRONATE SODIUM
     Indication: PRODUCT USED FOR UNKNOWN INDICATION
     Route: 065

REACTIONS (18)
  - Joint range of motion decreased [Unknown]
  - Joint swelling [Unknown]
  - Calcinosis [Unknown]
  - Osteoarthritis [Unknown]
  - Headache [Unknown]
  - Exostosis [Unknown]
  - Chronic sinusitis [Recovered/Resolved]
  - Hypertension [Unknown]
  - Carpal tunnel syndrome [Unknown]
  - Fatigue [Unknown]
  - Musculoskeletal stiffness [Unknown]
  - Therapeutic response shortened [Unknown]
  - Nasopharyngitis [Not Recovered/Not Resolved]
  - Pain in extremity [Recovered/Resolved]
  - Vertebral osteophyte [Unknown]
  - Middle ear effusion [Unknown]
  - Pain in extremity [Unknown]
  - Sacroiliac fracture [Unknown]

NARRATIVE: CASE EVENT DATE: 2007
